FAERS Safety Report 5460245-9 (Version None)
Quarter: 2007Q3

REPORT INFORMATION
  Report Type: 
  Country: None (occurrence: None)
  Receive Date: 20070919
  Receipt Date: 20070531
  Transmission Date: 20080115
  Serious: Yes (Other)
  Sender: FDA-Public Use
  Company Number: US-ASTRAZENECA-2007UW13563

PATIENT
  Age: 86 Month
  Sex: Male
  Weight: 28.2 kg

DRUGS (5)
  1. SEROQUEL [Suspect]
     Indication: ATTENTION DEFICIT/HYPERACTIVITY DISORDER
     Dates: start: 20041201, end: 20051101
  2. SEROQUEL [Suspect]
     Indication: AUTISM SPECTRUM DISORDER
     Dates: start: 20041201, end: 20051101
  3. GEODON [Concomitant]
  4. HALDOL [Concomitant]
  5. ADDERALL [Concomitant]
     Dates: start: 20051201

REACTIONS (2)
  - HYPERGLYCAEMIA [None]
  - TARDIVE DYSKINESIA [None]
